FAERS Safety Report 9720770 (Version 2)
Quarter: 2014Q1

REPORT INFORMATION
  Report Type: Spontaneous
  Country: AR (occurrence: AR)
  Receive Date: 20131129
  Receipt Date: 20140221
  Transmission Date: 20141002
  Serious: Yes (Hospitalization)
  Sender: FDA-Public Use
  Company Number: AR-AMGEN-ARGSP2013084055

PATIENT
  Age: 25 Year
  Sex: Female

DRUGS (6)
  1. ENBREL [Suspect]
     Indication: PSORIATIC ARTHROPATHY
     Dosage: 50 MG, WEEKLY
     Route: 065
     Dates: start: 20070817, end: 200712
  2. ENBREL [Suspect]
     Dosage: 50 MG, WEEKLY
     Route: 065
     Dates: start: 2009
  3. LEVOTHYROXINE [Concomitant]
     Indication: BASEDOW^S DISEASE
     Dosage: 100 MG, DAILY
     Dates: start: 2005
  4. CALCIUM [Concomitant]
     Dosage: 400 MG, 1X/DAY
     Dates: start: 2008
  5. ERVEMIN                            /00113801/ [Concomitant]
     Dosage: 20 MG, WEEKLY
     Dates: start: 2006
  6. FOLIC ACID [Concomitant]
     Dosage: 5 MG, WEEKLY

REACTIONS (2)
  - Cholestasis [Recovered/Resolved]
  - Varicose vein [Not Recovered/Not Resolved]
